FAERS Safety Report 9957839 (Version 2)
Quarter: 2014Q1

REPORT INFORMATION
  Report Type: Report from Study
  Country: US (occurrence: US)
  Receive Date: 20140304
  Receipt Date: 20140304
  Transmission Date: 20141002
  Serious: No
  Sender: FDA-Public Use
  Company Number: US-ABBVIE-13P-163-1047802-00

PATIENT
  Age: 59 Year
  Sex: Female

DRUGS (11)
  1. HUMIRA [Suspect]
     Indication: CROHN^S DISEASE
     Dates: start: 20130203
  2. B 12 [Concomitant]
     Indication: PRODUCT USED FOR UNKNOWN INDICATION
  3. PENTASA [Concomitant]
     Indication: CROHN^S DISEASE
     Dosage: 4000MG DAILY
     Dates: end: 20130318
  4. PENTASA [Concomitant]
     Dosage: 2000 MG DAILY
     Dates: start: 20130318
  5. OMEPRAZOLE [Concomitant]
     Indication: GASTROOESOPHAGEAL REFLUX DISEASE
     Dosage: 1-2 DAILY
  6. OMEPRAZOLE [Concomitant]
     Indication: DYSPEPSIA
  7. CALCIUM + VITAMIN D [Concomitant]
     Indication: PRODUCT USED FOR UNKNOWN INDICATION
  8. OYSTER SHELL CALCIUM [Concomitant]
     Indication: PRODUCT USED FOR UNKNOWN INDICATION
  9. MULTIVITAMIN [Concomitant]
     Indication: PRODUCT USED FOR UNKNOWN INDICATION
  10. BIOTIN [Concomitant]
     Indication: PRODUCT USED FOR UNKNOWN INDICATION
     Dosage: 500 MCG DAILY
  11. B COMPLEX [Concomitant]
     Indication: PRODUCT USED FOR UNKNOWN INDICATION

REACTIONS (8)
  - Feeling abnormal [Unknown]
  - Injection site pain [Not Recovered/Not Resolved]
  - Injection site reaction [Not Recovered/Not Resolved]
  - Rash erythematous [Unknown]
  - Injection site pruritus [Unknown]
  - Dysgeusia [Unknown]
  - Pain [Unknown]
  - Injection site erythema [Recovering/Resolving]
